FAERS Safety Report 7405113 (Version 3)
Quarter: 2012Q4

REPORT INFORMATION
  Report Type: 
  Country: DE (occurrence: DE)
  Receive Date: 20100601
  Receipt Date: 20120906
  Transmission Date: 20130627
  Serious: Yes (Death, Hospitalization)
  Sender: FDA-Public Use
  Company Number: DE-RANBAXY-2010RR-34055

PATIENT
  Age: 54 Year
  Sex: Male
  Weight: 83 kg

DRUGS (19)
  1. ALLOPURINOL [Suspect]
     Indication: HYPERURICAEMIA
     Dosage: 150 mg, qd
     Route: 048
     Dates: end: 20100423
  2. ALLOPURINOL [Suspect]
     Dosage: 300 mg
     Route: 065
     Dates: start: 20100424
  3. METFORMIN [Suspect]
     Indication: TYPE 2 DIABETES MELLITUS
     Dosage: 500 mg, qd
     Route: 048
     Dates: start: 200807, end: 20100422
  4. METFORMIN [Suspect]
     Dosage: UNK
     Route: 065
     Dates: start: 20090713
  5. METFORMIN [Suspect]
     Dosage: 500 mg
     Route: 065
     Dates: start: 20100424
  6. CRESTOR [Suspect]
     Indication: HYPERLIPIDAEMIA
     Dosage: 10 mg, qd
     Route: 048
     Dates: start: 20091008, end: 20100423
  7. CRESTOR [Suspect]
     Dosage: 10 mg
     Route: 065
     Dates: start: 20100424
  8. JANUMET [Suspect]
     Indication: TYPE 2 DIABETES MELLITUS
     Dosage: 1 DF, UNK
     Route: 048
     Dates: start: 20090713, end: 20100423
  9. JANUMET [Suspect]
     Dosage: 50 mg/1g
     Route: 065
     Dates: start: 20100424
  10. ACTOS [Suspect]
     Indication: TYPE 2 DIABETES MELLITUS
     Dosage: 15 mg, qd
     Route: 048
     Dates: start: 20090713, end: 20100423
  11. ACTOS [Suspect]
     Dosage: 15 mg
     Route: 065
     Dates: start: 20100424
  12. OMACOR [Suspect]
     Indication: HYPERTRIGLYCERIDAEMIA
     Dosage: UNK
     Route: 048
     Dates: start: 200807, end: 20100423
  13. RASILEZ [Suspect]
     Indication: HYPERTENSION
     Dosage: 150 mg, qd
     Route: 048
     Dates: start: 2007, end: 20100423
  14. RASILEZ [Suspect]
     Dosage: 150 mg
     Route: 065
     Dates: start: 20100424
  15. RAMIPRIL [Concomitant]
     Indication: HYPERTENSION
     Dosage: 5 mg, qd
     Route: 048
     Dates: start: 200510
  16. METOHEXAL SUCC 95MG [Concomitant]
     Indication: HYPERTENSION
     Dosage: 47.5 mg, qd
     Route: 048
     Dates: start: 200510
  17. SIMVAHEXAL 40 MG FILMTABLETTEN [Concomitant]
     Indication: HYPERLIPIDAEMIA
     Dosage: 40 mg, qd
     Route: 048
     Dates: start: 2005, end: 20091007
  18. JANUVIA [Concomitant]
     Indication: DIABETES MELLITUS
     Dosage: UNK
     Dates: start: 2007
  19. INSULIN [Concomitant]
     Indication: DIABETES MELLITUS
     Dosage: UNK
     Route: 065
     Dates: start: 20100504, end: 20100511

REACTIONS (1)
  - Liver injury [Recovering/Resolving]
